FAERS Safety Report 4662143-7 (Version None)
Quarter: 2005Q2

REPORT INFORMATION
  Report Type: 
  Country: None (occurrence: None)
  Receive Date: 20050512
  Receipt Date: 20050425
  Transmission Date: 20051028
  Serious: Yes (Hospitalization, Other)
  Sender: FDA-Public Use
  Company Number: US_0501111591

PATIENT
  Age: 69 Year
  Sex: Female

DRUGS (2)
  1. HUMALOG [Suspect]
     Dosage: 50 U DAY
     Dates: start: 20041124, end: 20041212
  2. GLYBURIDE [Concomitant]

REACTIONS (15)
  - BLINDNESS TRANSIENT [None]
  - BLOOD GLUCOSE FLUCTUATION [None]
  - BLOOD GLUCOSE INCREASED [None]
  - CEREBROVASCULAR ACCIDENT [None]
  - CHEST PAIN [None]
  - CONVULSION [None]
  - DISORDER OF ORBIT [None]
  - DRUG INEFFECTIVE [None]
  - DYSSTASIA [None]
  - NAUSEA [None]
  - PARESIS [None]
  - SENSORY DISTURBANCE [None]
  - URTICARIA [None]
  - VOMITING [None]
  - WEIGHT INCREASED [None]
